FAERS Safety Report 5499360-2 (Version None)
Quarter: 2007Q4

REPORT INFORMATION
  Report Type: 
  Country: None (occurrence: None)
  Receive Date: 20071026
  Receipt Date: 20071015
  Transmission Date: 20080405
  Serious: Yes (Hospitalization)
  Sender: FDA-Public Use
  Company Number: US-JNJFOC-20070704397

PATIENT
  Sex: Female
  Weight: 86.18 kg

DRUGS (9)
  1. REMICADE [Suspect]
     Indication: RHEUMATOID ARTHRITIS
     Route: 042
  2. LISINOPRIL [Concomitant]
  3. GLYBURIDE [Concomitant]
  4. ULTRACET [Concomitant]
  5. FUROSEMIDE [Concomitant]
  6. METOLAZONE [Concomitant]
  7. IRON PILL [Concomitant]
  8. DETROL [Concomitant]
  9. TRAMADOL HCL [Concomitant]

REACTIONS (6)
  - COUGH [None]
  - ERYTHEMA [None]
  - FATIGUE [None]
  - PRURITUS [None]
  - RHINORRHOEA [None]
  - SKIN INFECTION [None]
